FAERS Safety Report 6093378-7 (Version None)
Quarter: 2009Q1

REPORT INFORMATION
  Report Type: 
  Country: None (occurrence: None)
  Receive Date: 20090220
  Receipt Date: 20090210
  Transmission Date: 20090719
  Serious: Yes (Death, Hospitalization, Other)
  Sender: FDA-Public Use
  Company Number: GXKR2009IT01794

PATIENT
  Age: 63 Year
  Sex: Male

DRUGS (6)
  1. FLUDARABINE PHOSPHATE [Suspect]
     Indication: CHEMOTHERAPY
  2. VINCRISTINE [Suspect]
     Indication: CHEMOTHERAPY
  3. PREDNISONE [Suspect]
     Indication: CHEMOTHERAPY
  4. CHLORAMBUCIL (CHLORAMBUCIL) [Suspect]
     Indication: CHEMOTHERAPY
  5. RITUXIMAB (RITUXIMAB) [Suspect]
     Indication: CHEMOTHERAPY
  6. CYCLOPHOSPHAMIDE [Suspect]
     Indication: CHEMOTHERAPY

REACTIONS (13)
  - ANAEMIA HAEMOLYTIC AUTOIMMUNE [None]
  - BLINDNESS [None]
  - CHRONIC LYMPHOCYTIC LEUKAEMIA [None]
  - COGNITIVE DISORDER [None]
  - CONDITION AGGRAVATED [None]
  - CYTOMEGALOVIRUS INFECTION [None]
  - DIPLOPIA [None]
  - DYSPNOEA [None]
  - HEMIPARESIS [None]
  - HUMAN POLYOMAVIRUS INFECTION [None]
  - JC VIRUS INFECTION [None]
  - PROGRESSIVE MULTIFOCAL LEUKOENCEPHALOPATHY [None]
  - PYREXIA [None]
